FAERS Safety Report 6279989-4 (Version None)
Quarter: 2009Q3

REPORT INFORMATION
  Report Type: 
  Country: None (occurrence: None)
  Receive Date: 20090723
  Receipt Date: 20090424
  Transmission Date: 20100115
  Serious: No
  Sender: FDA-Public Use
  Company Number: US-AMGEN-KDL344483

PATIENT
  Sex: Female
  Weight: 74.9 kg

DRUGS (6)
  1. PROCRIT [Suspect]
     Indication: RENAL FAILURE CHRONIC
     Route: 058
     Dates: start: 20060801
  2. COREG [Concomitant]
  3. PLAVIX [Concomitant]
  4. PROTONIX [Concomitant]
  5. ALDACTONE [Concomitant]
  6. GLUCOTROL [Concomitant]

REACTIONS (4)
  - ARTHRALGIA [None]
  - GASTRIC DISORDER [None]
  - INJECTION SITE PAIN [None]
  - MUSCLE SPASMS [None]
